FAERS Safety Report 15246368 (Version 1)
Quarter: 2018Q3

REPORT INFORMATION
  Report Type: Spontaneous
  Country: US (occurrence: US)
  Receive Date: 20180806
  Receipt Date: 20180806
  Transmission Date: 20181010
  Serious: Yes (Hospitalization, Other)
  Sender: FDA-Public Use
  Company Number: US-SA-2018SA210776

PATIENT
  Age: 46 Year
  Sex: Female
  Weight: 82.55 kg

DRUGS (11)
  1. FABRAZYME [Suspect]
     Active Substance: AGALSIDASE BETA
     Dosage: 0.97 MG/KG, QW
     Route: 041
  2. SODIUM CHLORIDE. [Concomitant]
     Active Substance: SODIUM CHLORIDE
     Indication: FLUSHING
     Dosage: 0.9 % AS DIRECTED
     Route: 041
     Dates: start: 20180207
  3. LEXAPRO [Concomitant]
     Active Substance: ESCITALOPRAM OXALATE
     Dosage: 1 DOSE BY MOUTH AS DIRECTED
     Route: 048
     Dates: start: 20120717
  4. VITAMIN D [ERGOCALCIFEROL] [Concomitant]
     Dosage: 1 DF BYMOUTH AS DIRECTED
     Route: 048
     Dates: start: 20120717
  5. OMEPRAZOLE. [Concomitant]
     Active Substance: OMEPRAZOLE
     Dosage: 1 DOSE BY MOUTH AS DIRECTED
     Route: 048
     Dates: start: 20120717
  6. EPINEPHRINE. [Concomitant]
     Active Substance: EPINEPHRINE
     Indication: ANAPHYLACTIC REACTION
     Dosage: 0.3 MG, PRN
     Route: 030
     Dates: start: 20180207
  7. LOVASTATIN. [Concomitant]
     Active Substance: LOVASTATIN
     Dosage: 1 DOSE BY MOUTH AS DIRECTED
     Route: 048
     Dates: start: 20120717
  8. AMOXICILLIN. [Concomitant]
     Active Substance: AMOXICILLIN
     Dosage: 1 DF BY MOUTH AS DIRECTED
     Route: 048
     Dates: start: 20140918
  9. NORMAL SALINE [Concomitant]
     Active Substance: SODIUM CHLORIDE
     Dosage: 0.9 % AS DIRECTED
     Route: 041
     Dates: start: 20180207
  10. ENALAPRIL [Concomitant]
     Active Substance: ENALAPRIL
     Dosage: 1 DF BY MOUTH AS DIRECTED
     Route: 048
     Dates: start: 20120717
  11. LEVOTHYROXINE. [Concomitant]
     Active Substance: LEVOTHYROXINE
     Dosage: 1 DF BY MOUTH AS DORECTED
     Route: 048
     Dates: start: 20120717

REACTIONS (1)
  - Hip arthroplasty [Recovered/Resolved]

NARRATIVE: CASE EVENT DATE: 20180716
